FAERS Safety Report 18538492 (Version 2)
Quarter: 2020Q4

REPORT INFORMATION
  Report Type: Spontaneous
  Country: US (occurrence: US)
  Receive Date: 20201123
  Receipt Date: 20201218
  Transmission Date: 20210114
  Serious: Yes (Hospitalization)
  Sender: FDA-Public Use
  Company Number: US-ROCHE-2716642

PATIENT
  Age: 52 Year
  Sex: Male

DRUGS (1)
  1. XELODA [Suspect]
     Active Substance: CAPECITABINE
     Indication: PRODUCT USED FOR UNKNOWN INDICATION
     Route: 048
     Dates: start: 202010

REACTIONS (6)
  - Nausea [Unknown]
  - Neck pain [Unknown]
  - Thrombosis [Unknown]
  - Lemierre syndrome [Unknown]
  - Neuropathy peripheral [Unknown]
  - Infection [Unknown]

NARRATIVE: CASE EVENT DATE: 20201110
